FAERS Safety Report 9057807 (Version 1)
Quarter: 2013Q1

REPORT INFORMATION
  Report Type: Spontaneous
  Country: US (occurrence: None)
  Receive Date: 20130204
  Receipt Date: 20130204
  Transmission Date: 20140127
  Serious: Yes (Disabling)
  Sender: FDA-Public Use
  Company Number: None

PATIENT
  Age: 62 Year
  Sex: Female

DRUGS (2)
  1. LEVAQUIN [Suspect]
     Indication: BRONCHOPNEUMONIA
     Dosage: ONCE PER DAY
     Route: 048
     Dates: start: 20121213, end: 20121222
  2. LEVAQUIN [Suspect]
     Indication: ACUTE SINUSITIS
     Dosage: ONCE PER DAY
     Route: 048
     Dates: start: 20121213, end: 20121222

REACTIONS (1)
  - Tendonitis [None]
